FAERS Safety Report 7778060-X (Version None)
Quarter: 2011Q3

REPORT INFORMATION
  Report Type: 
  Country: None (occurrence: None)
  Receive Date: 20110926
  Receipt Date: 20110920
  Transmission Date: 20111222
  Serious: Yes (Hospitalization, Other)
  Sender: FDA-Public Use
  Company Number: JP-BAYER-2011-089112

PATIENT
  Age: 61 Year
  Sex: Female

DRUGS (3)
  1. CONTRAST MEDIA [Suspect]
     Dosage: UNK
     Route: 065
     Dates: start: 20110906, end: 20110906
  2. NEXAVAR [Suspect]
     Indication: HEPATIC NEOPLASM MALIGNANT
     Dosage: 400 MG, QD
     Route: 048
     Dates: start: 20110830, end: 20110918
  3. CONTRAST MEDIA [Suspect]
     Indication: COMPUTERISED TOMOGRAM
     Dosage: UNK
     Route: 065
     Dates: start: 20110830, end: 20110830

REACTIONS (5)
  - BLOOD PRESSURE INCREASED [None]
  - TOXIC SKIN ERUPTION [None]
  - SPINAL COMPRESSION FRACTURE [None]
  - C-REACTIVE PROTEIN INCREASED [None]
  - BLOOD BILIRUBIN INCREASED [None]
